FAERS Safety Report 7413311-2 (Version None)
Quarter: 2011Q2

REPORT INFORMATION
  Report Type: 
  Country: None (occurrence: None)
  Receive Date: 20110413
  Receipt Date: 20110331
  Transmission Date: 20111010
  Serious: Yes (Hospitalization)
  Sender: FDA-Public Use
  Company Number: PHHY2011US27311

PATIENT
  Sex: Male

DRUGS (20)
  1. FLONASE [Concomitant]
  2. PREDNISONE [Concomitant]
     Dosage: 10 MG, UNK
  3. PRILOSEC [Concomitant]
     Dosage: 20 MG, BID
     Dates: start: 20110209
  4. LIPITOR [Concomitant]
     Dosage: 40 MG, UNK
     Dates: start: 20110209
  5. MYCELEX [Concomitant]
     Dosage: 10 MG, UNK
  6. ZOFRAN [Concomitant]
     Dosage: 8 MG, PRN
  7. LISINOPRIL [Concomitant]
     Dosage: 10 MG, UNK
     Dates: start: 20110209
  8. PREDNISOLONE [Concomitant]
     Dosage: 5 MG, UNK
  9. LORAZEPAM [Concomitant]
     Dosage: UNK
  10. METOPROLOL TARTRATE [Concomitant]
     Dosage: 200 MG, UNK
  11. FLUTICASONE [Concomitant]
     Dosage: 50 UG, UNK
  12. MULTI-VITAMIN [Concomitant]
  13. ACETAMINOPHEN [Concomitant]
     Dosage: 325 MG, UNK
     Dates: start: 20110209
  14. AFINITOR [Suspect]
     Indication: RENAL CANCER
     Dosage: 10 MG, QD
     Dates: start: 20110214, end: 20110325
  15. VITAMIN B COMPLEX CAP [Concomitant]
     Dosage: DAILY
     Dates: start: 20110209
  16. PREDNISONE [Concomitant]
     Dosage: 20 MG, UNK
  17. PLAVIX [Concomitant]
     Dosage: 75 MG, UNK
     Dates: start: 20110209
  18. ACETYLSALICYLIC ACID SRT [Concomitant]
     Dosage: 81 MG, UNK
     Dates: start: 20110209
  19. NEXAVAR [Concomitant]
     Dosage: 200 MG, UNK
  20. SENNA [Concomitant]
     Dosage: 0.5 MG, PRN

REACTIONS (8)
  - GINGIVAL PAIN [None]
  - EPISTAXIS [None]
  - OSTEITIS [None]
  - SWOLLEN TONGUE [None]
  - ORAL PAIN [None]
  - LIP SWELLING [None]
  - NAUSEA [None]
  - HAEMOGLOBIN DECREASED [None]
